FAERS Safety Report 17041248 (Version 1)
Quarter: 2019Q4

REPORT INFORMATION
  Report Type: Spontaneous
  Country: CN (occurrence: CN)
  Receive Date: 20191118
  Receipt Date: 20191118
  Transmission Date: 20200122
  Serious: Yes (Death, Other)
  Sender: FDA-Public Use
  Company Number: CN-ROCHE-2463736

PATIENT
  Age: 29 Year
  Sex: Female

DRUGS (28)
  1. MABTHERA [Suspect]
     Active Substance: RITUXIMAB
     Indication: B-CELL LYMPHOMA
     Dosage: R-CHOP REGIMEN, 8 CYCLES
     Route: 065
     Dates: start: 2007
  2. MABTHERA [Suspect]
     Active Substance: RITUXIMAB
     Dosage: MAINTAIN TREATMENT
     Route: 065
     Dates: start: 200712
  3. MABTHERA [Suspect]
     Active Substance: RITUXIMAB
     Dosage: FCR REGIMENT
     Route: 065
     Dates: start: 200812
  4. MABTHERA [Suspect]
     Active Substance: RITUXIMAB
     Dosage: MAINTAIN TREATMENT
     Route: 065
     Dates: start: 200905
  5. DOXORUBICIN [Concomitant]
     Active Substance: DOXORUBICIN
     Dosage: MEGACHOP REGIMEN
     Route: 065
     Dates: start: 200811
  6. BENDAMUSTINE [Concomitant]
     Active Substance: BENDAMUSTINE
     Indication: B-CELL LYMPHOMA
     Dosage: BR REGIMEN, 3 CYCLES
     Route: 065
     Dates: start: 201302
  7. LENALIDOMIDE [Concomitant]
     Active Substance: LENALIDOMIDE
     Dosage: FCR REGIMEN
     Route: 065
     Dates: start: 201302
  8. CYCLOPHOSPHAMIDE. [Concomitant]
     Active Substance: CYCLOPHOSPHAMIDE
     Dosage: MEGACHOP REGIMEN
     Route: 065
     Dates: start: 200811
  9. DOXORUBICIN [Concomitant]
     Active Substance: DOXORUBICIN
     Indication: B-CELL LYMPHOMA
     Dosage: R-CHOP REGIMEN, 8 CYCLES
     Route: 065
     Dates: start: 2007
  10. FLUDARABINE [Concomitant]
     Active Substance: FLUDARABINE PHOSPHATE
     Indication: B-CELL LYMPHOMA
     Dosage: FCR REGIMEN, 4 CYCLES
     Route: 065
     Dates: start: 2008
  11. MABTHERA [Suspect]
     Active Substance: RITUXIMAB
     Dosage: FCR REGIMENT, 1CYCLE
     Route: 065
     Dates: start: 201302
  12. CYCLOPHOSPHAMIDE. [Concomitant]
     Active Substance: CYCLOPHOSPHAMIDE
     Indication: B-CELL LYMPHOMA
     Dosage: R-CHOP REGIMEN, 8 CYCLES
     Route: 065
     Dates: start: 2007
  13. VINCRISTINE [Concomitant]
     Active Substance: VINCRISTINE
     Dosage: MEGACHOP REGIMEN
     Route: 065
     Dates: start: 200811
  14. FLUDARABINE [Concomitant]
     Active Substance: FLUDARABINE PHOSPHATE
     Dosage: FCR REGIMEN
     Route: 065
     Dates: start: 200812
  15. BENDAMUSTINE [Concomitant]
     Active Substance: BENDAMUSTINE
     Dosage: FCR REGIMEN
     Route: 065
     Dates: start: 201302
  16. CYCLOPHOSPHAMIDE. [Concomitant]
     Active Substance: CYCLOPHOSPHAMIDE
     Dosage: FCR REGIMEN,1CYCLE
     Route: 065
     Dates: start: 201303
  17. MABTHERA [Suspect]
     Active Substance: RITUXIMAB
     Dosage: FCR REGIMENT
     Route: 065
     Dates: start: 200809, end: 200810
  18. MABTHERA [Suspect]
     Active Substance: RITUXIMAB
     Route: 065
     Dates: start: 201105
  19. CYCLOPHOSPHAMIDE. [Concomitant]
     Active Substance: CYCLOPHOSPHAMIDE
     Dosage: FCR REGIMEN
     Route: 065
     Dates: start: 200812
  20. VINCRISTINE [Concomitant]
     Active Substance: VINCRISTINE
     Indication: B-CELL LYMPHOMA
     Dosage: R-CHOP REGIMEN, 8 CYCLES
     Route: 065
     Dates: start: 2007
  21. FLUDARABINE [Concomitant]
     Active Substance: FLUDARABINE PHOSPHATE
     Dosage: FCR REGIMEN
     Route: 065
     Dates: start: 201302
  22. LENALIDOMIDE [Concomitant]
     Active Substance: LENALIDOMIDE
     Indication: B-CELL LYMPHOMA
     Dosage: MAINTAIN TREATMENT
     Route: 065
     Dates: start: 201302
  23. LENALIDOMIDE [Concomitant]
     Active Substance: LENALIDOMIDE
     Dosage: FCR REGIMEN
     Route: 065
     Dates: start: 200812
  24. BENDAMUSTINE [Concomitant]
     Active Substance: BENDAMUSTINE
     Dosage: FCR REGIMEN
     Route: 065
     Dates: start: 200812
  25. CYCLOPHOSPHAMIDE. [Concomitant]
     Active Substance: CYCLOPHOSPHAMIDE
     Dosage: FCR REGIMEN, 4 CYCLES
     Route: 065
     Dates: start: 2008
  26. MABTHERA [Suspect]
     Active Substance: RITUXIMAB
     Dosage: BR REGIMENT, 3CYCLE
     Route: 065
     Dates: start: 201303
  27. PREDNISONE. [Concomitant]
     Active Substance: PREDNISONE
     Indication: B-CELL LYMPHOMA
     Dosage: R-CHOP REGIMEN, 8 CYCLES
     Route: 065
     Dates: start: 2007
  28. PREDNISONE. [Concomitant]
     Active Substance: PREDNISONE
     Dosage: MEGACHOP REGIMEN
     Route: 065
     Dates: start: 200811

REACTIONS (5)
  - Ascites [Unknown]
  - Hepatomegaly [Unknown]
  - Oedema peripheral [Unknown]
  - Pleural effusion [Unknown]
  - Splenomegaly [Unknown]

NARRATIVE: CASE EVENT DATE: 201301
